FAERS Safety Report 17984849 (Version 1)
Quarter: 2020Q3

REPORT INFORMATION
  Report Type: Spontaneous
  Country: PT (occurrence: PT)
  Receive Date: 20200706
  Receipt Date: 20200706
  Transmission Date: 20201103
  Serious: Yes (Other)
  Sender: FDA-Public Use
  Company Number: PT-BAYER-2019-194412

PATIENT
  Age: 90 Year
  Sex: Female

DRUGS (4)
  1. METRONIDAZOL [METRONIDAZOLE] [Suspect]
     Active Substance: METRONIDAZOLE
     Dosage: UNK
  2. ALBUMIN [Concomitant]
     Active Substance: ALBUMIN HUMAN
  3. FUROSEMIDA [FUROSEMIDE] [Concomitant]
     Active Substance: FUROSEMIDE
  4. CIPROFLOXACIN. [Suspect]
     Active Substance: CIPROFLOXACIN
     Indication: PRODUCT USED FOR UNKNOWN INDICATION

REACTIONS (4)
  - Drug ineffective [Unknown]
  - Acute kidney injury [Unknown]
  - Hypoalbuminaemia [Not Recovered/Not Resolved]
  - Acute kidney injury [Not Recovered/Not Resolved]
